FAERS Safety Report 10075693 (Version 3)
Quarter: 2014Q3

REPORT INFORMATION
  Report Type: Report from Study
  Country: TW (occurrence: TW)
  Receive Date: 20140414
  Receipt Date: 20140925
  Transmission Date: 20150326
  Serious: Yes (Hospitalization)
  Sender: FDA-Public Use
  Company Number: TW-US-EMD SERONO, INC.-7282013

PATIENT
  Age: 11 Year
  Sex: Female
  Weight: 28 kg

DRUGS (3)
  1. SAIZEN [Suspect]
     Active Substance: SOMATROPIN
  2. SAIZEN [Suspect]
     Active Substance: SOMATROPIN
     Indication: GROWTH HORMONE DEFICIENCY
     Dates: start: 20120301
  3. SAIZEN [Suspect]
     Active Substance: SOMATROPIN

REACTIONS (3)
  - Ankylosing spondylitis [Not Recovered/Not Resolved]
  - Therapeutic response decreased [Not Recovered/Not Resolved]
  - Discomfort [Recovered/Resolved]
